FAERS Safety Report 6472462-X (Version None)
Quarter: 2009Q4

REPORT INFORMATION
  Report Type: 
  Country: None (occurrence: None)
  Receive Date: 20091201
  Receipt Date: 20091119
  Transmission Date: 20100525
  Serious: Yes (Other)
  Sender: FDA-Public Use
  Company Number: A-US2009-28081

PATIENT
  Age: 65 Year
  Sex: Male
  Weight: 91.2 kg

DRUGS (20)
  1. TRACLEER [Suspect]
     Indication: PULMONARY ARTERIAL HYPERTENSION
     Dosage: 125 MG,BID,ORAL
     Route: 048
     Dates: start: 20080925
  2. ADVAIR DISKUS 100/50 [Concomitant]
  3. ALBUTEROL [Concomitant]
  4. ALLEGRA [Concomitant]
  5. CEPHALEXIN [Concomitant]
  6. CYMBALTA [Concomitant]
  7. FLOMAX [Concomitant]
  8. ISOSORBIDE MONONITRATE [Concomitant]
  9. LOPRESSOR [Concomitant]
  10. LORAZEPAM [Concomitant]
  11. OMEGA-3 (EICOSAPENTAENOIC ACID, DOCOSAHEXANOIC ACID) [Concomitant]
  12. NITROGLYCERIN [Concomitant]
  13. OPIUM (OPIUM ALKALOIDS TOTAL) [Concomitant]
  14. OXYCODONE HCL [Concomitant]
  15. PLAVIX [Concomitant]
  16. SPIRIVA [Concomitant]
  17. TRICOR [Concomitant]
  18. PREVACID [Concomitant]
  19. DIFIL G (DIPROPHYLLINE, GUAIFENESIN) [Concomitant]
  20. PENTASA [Concomitant]

REACTIONS (18)
  - ABDOMINAL DISTENSION [None]
  - ABDOMINAL PAIN [None]
  - ABDOMINAL PAIN LOWER [None]
  - ABDOMINAL PAIN UPPER [None]
  - ANAEMIA [None]
  - ARTHRITIS [None]
  - BILIARY DILATATION [None]
  - CHEST PAIN [None]
  - CONSTIPATION [None]
  - COUGH [None]
  - DECREASED APPETITE [None]
  - DILATATION INTRAHEPATIC DUCT ACQUIRED [None]
  - DYSPNOEA [None]
  - FLATULENCE [None]
  - HEADACHE [None]
  - MUSCULOSKELETAL STIFFNESS [None]
  - NOCTURIA [None]
  - WEIGHT DECREASED [None]
